FAERS Safety Report 14276158 (Version 1)
Quarter: 2017Q4

REPORT INFORMATION
  Report Type: Report from Study
  Country: DE (occurrence: DE)
  Receive Date: 20171212
  Receipt Date: 20171212
  Transmission Date: 20180321
  Serious: Yes (Hospitalization)
  Sender: FDA-Public Use
  Company Number: DE-AMGEN-DEUCT2017182085

PATIENT
  Age: 29 Year
  Sex: Female

DRUGS (14)
  1. ETANERCEPT [Suspect]
     Active Substance: ETANERCEPT
     Dosage: UNK
     Route: 065
     Dates: start: 2011
  2. ROACTEMRA [Suspect]
     Active Substance: TOCILIZUMAB
     Indication: JUVENILE IDIOPATHIC ARTHRITIS
     Dosage: 162 MG, QWK
     Route: 058
     Dates: start: 201702, end: 201706
  3. ETANERCEPT [Suspect]
     Active Substance: ETANERCEPT
     Dosage: UNK
     Route: 065
     Dates: start: 2011
  4. ETANERCEPT [Suspect]
     Active Substance: ETANERCEPT
     Dosage: UNK
     Route: 065
     Dates: start: 201603
  5. MTX [Suspect]
     Active Substance: METHOTREXATE SODIUM
     Indication: JUVENILE IDIOPATHIC ARTHRITIS
     Dosage: 10 MG, UNK
     Route: 065
  6. ETANERCEPT [Suspect]
     Active Substance: ETANERCEPT
     Dosage: UNK
     Route: 065
     Dates: start: 2012
  7. MTX [Suspect]
     Active Substance: METHOTREXATE SODIUM
     Dosage: 5 MG, UNK
     Route: 065
  8. MTX [Suspect]
     Active Substance: METHOTREXATE SODIUM
     Dosage: 7.5 MG, UNK
     Route: 065
  9. ETANERCEPT [Suspect]
     Active Substance: ETANERCEPT
     Dosage: UNK
     Route: 065
     Dates: start: 2012
  10. MTX [Suspect]
     Active Substance: METHOTREXATE SODIUM
     Dosage: 5 MG, UNK
     Route: 065
  11. ETANERCEPT [Suspect]
     Active Substance: ETANERCEPT
     Indication: PRODUCT USED FOR UNKNOWN INDICATION
     Dosage: UNK
     Route: 065
     Dates: start: 20060327
  12. HUMIRA [Suspect]
     Active Substance: ADALIMUMAB
     Indication: JUVENILE IDIOPATHIC ARTHRITIS
     Dosage: 40 MG, 2 TIMES/WK
     Route: 058
     Dates: start: 201604, end: 201701
  13. IBUPROFEN. [Concomitant]
     Active Substance: IBUPROFEN
     Indication: PRODUCT USED FOR UNKNOWN INDICATION
     Dosage: UNK
     Route: 065
  14. MTX [Suspect]
     Active Substance: METHOTREXATE SODIUM
     Dosage: 10 MG, UNK
     Route: 065

REACTIONS (3)
  - Appendicitis [Recovered/Resolved]
  - Gastritis bacterial [Unknown]
  - Gastrointestinal ulcer [Unknown]

NARRATIVE: CASE EVENT DATE: 2017
